FAERS Safety Report 11594843 (Version 1)
Quarter: 2015Q4

REPORT INFORMATION
  Report Type: Spontaneous
  Country: US (occurrence: US)
  Receive Date: 20151005
  Receipt Date: 20151005
  Transmission Date: 20160304
  Serious: No
  Sender: FDA-Public Use
  Company Number: US-ASTRAZENECA-2015SE93291

PATIENT
  Age: 19547 Day
  Sex: Female
  Weight: 52.2 kg

DRUGS (3)
  1. FASLODEX [Suspect]
     Active Substance: FULVESTRANT
     Indication: BREAST CANCER METASTATIC
     Route: 030
     Dates: start: 20150911
  2. FASLODEX [Suspect]
     Active Substance: FULVESTRANT
     Indication: BREAST CANCER METASTATIC
     Route: 030
  3. TRELSTAR [Concomitant]
     Active Substance: TRIPTORELIN PAMOATE
     Route: 030
     Dates: start: 201507

REACTIONS (4)
  - Arthralgia [Recovered/Resolved]
  - Insomnia [Unknown]
  - Movement disorder [Unknown]
  - Joint stiffness [Unknown]

NARRATIVE: CASE EVENT DATE: 20150911
